FAERS Safety Report 9878535 (Version 1)
Quarter: 2014Q1

REPORT INFORMATION
  Report Type: Spontaneous
  Country: US (occurrence: US)
  Receive Date: 20140206
  Receipt Date: 20140206
  Transmission Date: 20141002
  Serious: No
  Sender: FDA-Public Use
  Company Number: US-ALLERGAN-1312150US

PATIENT
  Age: 54 Year
  Sex: Female

DRUGS (4)
  1. BOTOX [Suspect]
     Indication: SKIN WRINKLING
     Dosage: UNK, SINGLE
     Route: 030
     Dates: start: 20130625, end: 20130625
  2. BOTOX [Suspect]
     Indication: SKIN WRINKLING
  3. XANAX [Concomitant]
     Indication: INSOMNIA
  4. ESTROGEN NOS W/PROGESTERONE [Concomitant]
     Indication: MENOPAUSE

REACTIONS (2)
  - Facial paresis [Unknown]
  - Therapeutic response decreased [Unknown]
